FAERS Safety Report 5080523-5 (Version None)
Quarter: 2006Q3

REPORT INFORMATION
  Report Type: 
  Country: None (occurrence: None)
  Receive Date: 20060807
  Receipt Date: 20060721
  Transmission Date: 20061208
  Serious: Yes (Other)
  Sender: FDA-Public Use
  Company Number: 603338

PATIENT
  Age: 1 Year
  Sex: Male
  Weight: 9.2 kg

DRUGS (2)
  1. ADVATE [Suspect]
     Indication: DRUG USE FOR UNKNOWN INDICATION
     Dosage: 100 U/KG; EVERY DAY;   Q OTHER DY
     Dates: start: 20050222
  2. ADVATE [Suspect]
     Indication: DRUG USE FOR UNKNOWN INDICATION
     Dosage: 100 U/KG; EVERY DAY;   Q OTHER DY
     Dates: start: 20051027

REACTIONS (1)
  - FACTOR VIII INHIBITION [None]
